FAERS Safety Report 25283593 (Version 1)
Quarter: 2025Q2

REPORT INFORMATION
  Report Type: Report from Study
  Country: US (occurrence: US)
  Receive Date: 20250508
  Receipt Date: 20250508
  Transmission Date: 20250716
  Serious: Yes (Other)
  Sender: ABBVIE
  Company Number: US-ABBVIE-22K-163-4491813-00

PATIENT
  Sex: Male

DRUGS (2)
  1. HUMIRA [Suspect]
     Active Substance: ADALIMUMAB
     Indication: Rheumatoid arthritis
     Route: 058
     Dates: start: 20010101
  2. HUMIRA [Suspect]
     Active Substance: ADALIMUMAB
     Route: 058

REACTIONS (7)
  - Lumbar spinal stenosis [Unknown]
  - Scoliosis [Unknown]
  - Injection site pain [Unknown]
  - Facet joint syndrome [Unknown]
  - Cervical spinal stenosis [Unknown]
  - Unevaluable event [Not Recovered/Not Resolved]
  - Dislocation of vertebra [Recovering/Resolving]
